FAERS Safety Report 10237297 (Version 2)
Quarter: 2014Q2

REPORT INFORMATION
  Report Type: Report from Study
  Country: AR (occurrence: AR)
  Receive Date: 20140613
  Receipt Date: 20140617
  Transmission Date: 20141212
  Serious: Yes (Hospitalization, Other)
  Sender: FDA-Public Use
  Company Number: AR-ABBVIE-14P-007-1245694-00

PATIENT
  Age: 64 Year
  Sex: Female

DRUGS (1)
  1. HUMIRA [Suspect]
     Indication: RHEUMATOID ARTHRITIS
     Route: 058
     Dates: start: 20120217

REACTIONS (5)
  - Lung neoplasm [Recovered/Resolved]
  - Pyrexia [Recovered/Resolved]
  - Blood count abnormal [Recovered/Resolved]
  - Lung neoplasm [Recovered/Resolved]
  - Pyrexia [Recovered/Resolved]
